FAERS Safety Report 19471570 (Version 1)
Quarter: 2021Q2

REPORT INFORMATION
  Report Type: Other
  Country: DE (occurrence: DE)
  Receive Date: 20210629
  Receipt Date: 20210629
  Transmission Date: 20210717
  Serious: Yes (Death, Other)
  Sender: FDA-Public Use
  Company Number: DE-ROCHE-2856985

PATIENT

DRUGS (4)
  1. METHOTREXATE. [Suspect]
     Active Substance: METHOTREXATE
     Indication: ACUTE GRAFT VERSUS HOST DISEASE
     Route: 065
  2. PREDNISOLONE. [Suspect]
     Active Substance: PREDNISOLONE
     Indication: ACUTE GRAFT VERSUS HOST DISEASE
     Route: 065
  3. CYCLOSPORINE. [Suspect]
     Active Substance: CYCLOSPORINE
     Indication: ACUTE GRAFT VERSUS HOST DISEASE
     Route: 065
  4. MYCOPHENOLATE MOFETIL. [Suspect]
     Active Substance: MYCOPHENOLATE MOFETIL
     Indication: ACUTE GRAFT VERSUS HOST DISEASE
     Route: 065

REACTIONS (21)
  - Hepatotoxicity [Unknown]
  - Pulmonary haemorrhage [Fatal]
  - Cytomegalovirus infection [Unknown]
  - Enterococcal infection [Unknown]
  - Escherichia bacteraemia [Unknown]
  - Renal failure [Unknown]
  - Diarrhoea [Unknown]
  - Intracranial pressure increased [Unknown]
  - Gastrointestinal haemorrhage [Unknown]
  - Dysphagia [Unknown]
  - Vomiting [Unknown]
  - Parainfluenzae virus infection [Unknown]
  - Aspergillus infection [Unknown]
  - Pancytopenia [Unknown]
  - Acute kidney injury [Unknown]
  - Oral herpes [Unknown]
  - Gastroenteritis norovirus [Unknown]
  - Pneumonia fungal [Unknown]
  - Bacteraemia [Unknown]
  - Staphylococcal infection [Unknown]
  - Nausea [Unknown]
